FAERS Safety Report 19423772 (Version 1)
Quarter: 2021Q2

REPORT INFORMATION
  Report Type: Spontaneous
  Country: AR (occurrence: AR)
  Receive Date: 20210616
  Receipt Date: 20210616
  Transmission Date: 20210717
  Serious: Yes (Hospitalization, Other)
  Sender: FDA-Public Use
  Company Number: AR-MYLANLABS-2021M1035285

PATIENT
  Sex: Male

DRUGS (3)
  1. LAPENAX [Suspect]
     Active Substance: CLOZAPINE
     Dosage: UNK
     Route: 065
  2. LAPENAX [Suspect]
     Active Substance: CLOZAPINE
     Indication: SCHIZOPHRENIA
     Dosage: UNK
     Route: 065
     Dates: start: 2016, end: 2017
  3. TEGRETOL [Suspect]
     Active Substance: CARBAMAZEPINE
     Indication: PRODUCT USED FOR UNKNOWN INDICATION
     Dosage: 200 MG, QD
     Route: 065
     Dates: start: 2017

REACTIONS (7)
  - Tuberculosis [Recovered/Resolved]
  - Drug intolerance [Unknown]
  - Dental caries [Recovered/Resolved]
  - Urinary tract infection [Recovered/Resolved]
  - Productive cough [Recovered/Resolved]
  - COVID-19 [Recovered/Resolved]
  - Pyrexia [Unknown]

NARRATIVE: CASE EVENT DATE: 201909
